FAERS Safety Report 8280960-1 (Version None)
Quarter: 2012Q2

REPORT INFORMATION
  Report Type: 
  Country: None (occurrence: None)
  Receive Date: 20120412
  Receipt Date: 20120330
  Transmission Date: 20120825
  Serious: Yes (Hospitalization)
  Sender: FDA-Public Use
  Company Number: IE-BAXTER-2012BH005589

PATIENT
  Sex: Male
  Weight: 95.5 kg

DRUGS (4)
  1. SODIUM CHLORIDE_SODIUM CHLORIDE 0.90 %_SOLUTION FOR INFUSION_BAG, PVC [Suspect]
     Route: 042
     Dates: start: 20120201, end: 20120201
  2. PIPERACILLIN AND TAZOBACTAM [Suspect]
  3. TAZOCIN [Suspect]
     Route: 042
     Dates: start: 20120201, end: 20120201
  4. AMOXICILLIN AND CLAVULANATE POTASSIUM [Suspect]

REACTIONS (2)
  - ADVERSE DRUG REACTION [None]
  - HEPATIC FAILURE [None]
